FAERS Safety Report 15515873 (Version 5)
Quarter: 2025Q3

REPORT INFORMATION
  Report Type: Spontaneous
  Country: EU (occurrence: EU)
  Receive Date: 20181017
  Receipt Date: 20250725
  Transmission Date: 20251021
  Serious: Yes (Hospitalization, Other)
  Sender: AUROBINDO
  Company Number: EU-AUROBINDO-AUR-APL-2018-050732

PATIENT
  Age: 57 Year
  Sex: Female

DRUGS (4)
  1. OMEPRAZOLE [Suspect]
     Active Substance: OMEPRAZOLE
     Indication: Gastritis
     Route: 065
  2. BROMAZEPAM [Suspect]
     Active Substance: BROMAZEPAM
     Indication: Mental disorder
     Route: 048
  3. CYAMEMAZINE [Suspect]
     Active Substance: CYAMEMAZINE
     Indication: Mental disorder
     Route: 065
  4. DOSULEPIN HYDROCHLORIDE [Suspect]
     Active Substance: DOTHIEPIN HYDROCHLORIDE
     Indication: Mental disorder
     Route: 065

REACTIONS (10)
  - Acute kidney injury [Unknown]
  - Leukocytosis [Unknown]
  - Intentional overdose [Unknown]
  - C-reactive protein increased [Unknown]
  - Hepatic cytolysis [Unknown]
  - Rhabdomyolysis [Unknown]
  - Stress cardiomyopathy [Unknown]
  - Neutrophilia [Unknown]
  - Drug abuse [Unknown]
  - Toxicity to various agents [Recovering/Resolving]
